FAERS Safety Report 6919428-0 (Version None)
Quarter: 2010Q3

REPORT INFORMATION
  Report Type: 
  Country: None (occurrence: None)
  Receive Date: 20100811
  Receipt Date: 20091029
  Transmission Date: 20110219
  Serious: Yes (Other)
  Sender: FDA-Public Use
  Company Number: B0594024A

PATIENT
  Sex: Male

DRUGS (2)
  1. AUGMENTIN '125' [Suspect]
     Indication: RESPIRATORY DISORDER
     Dosage: 400MG TWICE PER DAY
     Route: 065
     Dates: start: 20090909, end: 20090911
  2. TOPAMAX [Concomitant]
     Indication: EPILEPSY

REACTIONS (3)
  - CONVULSION [None]
  - MENINGITIS [None]
  - RESPIRATORY TRACT INFECTION VIRAL [None]
